FAERS Safety Report 7022844-2 (Version None)
Quarter: 2010Q3

REPORT INFORMATION
  Report Type: 
  Country: None (occurrence: None)
  Receive Date: 20100930
  Receipt Date: 20100921
  Transmission Date: 20110219
  Serious: Yes (Hospitalization)
  Sender: FDA-Public Use
  Company Number: B0676808A

PATIENT
  Age: 3 Year
  Sex: Female

DRUGS (3)
  1. CLAVAMOX [Suspect]
     Indication: TONSILLITIS
     Route: 048
     Dates: start: 20100701, end: 20100706
  2. IBUPROFEN [Suspect]
     Route: 065
     Dates: start: 20100701, end: 20100715
  3. PARACETAMOL [Suspect]
     Route: 065
     Dates: start: 20100701, end: 20100715

REACTIONS (8)
  - BACK PAIN [None]
  - CHEST PAIN [None]
  - ECCHYMOSIS [None]
  - LOCALISED OEDEMA [None]
  - OEDEMA PERIPHERAL [None]
  - PERIORBITAL OEDEMA [None]
  - PYREXIA [None]
  - RASH [None]
